FAERS Safety Report 9147315 (Version 1)
Quarter: 2013Q1

REPORT INFORMATION
  Report Type: Spontaneous
  Country: KR (occurrence: None)
  Receive Date: 20130226
  Receipt Date: 20130226
  Transmission Date: 20140127
  Serious: Yes (Death)
  Sender: FDA-Public Use
  Company Number: 1611244

PATIENT
  Sex: 0

DRUGS (5)
  1. METHOTREXATE [Suspect]
     Dosage: NOT REPORTED,  UNKNOWN,  UNKNOWN?UNKNOWN  -  UNKNOWN  (12-WEEK)
  2. VINBLASTINE SULFATE [Suspect]
     Dosage: NOT REPORTED,  UNKNOWN,  UNKNOWN?UNKNOWN  -  UNKNOWN  (12 - WEEK)
  3. PREDNISOLONE [Suspect]
     Dosage: NOT REPORTED,  UNKNOWN,  UNKNOWN?UNKNOWN -  UNKNOWN  (12-WEEK)
  4. CYCLOPHOSPHAMIDE [Suspect]
     Dosage: NOT REPORTED,  UNKNOWN,  UNKNOWN?UNKNOWN  -  UNKNOWN  (12-WEEK)
  5. MERCAPTOPURINE [Suspect]
     Dosage: NOT REPORTED,  UNKNOWN,  UNKNOWN?UNKNOWN  -  UNKNOWN  (UNKNOWN)

REACTIONS (1)
  - Pneumocystis jirovecii pneumonia [None]
